FAERS Safety Report 6145937-0 (Version None)
Quarter: 2009Q2

REPORT INFORMATION
  Report Type: 
  Country: None (occurrence: None)
  Receive Date: 20090403
  Receipt Date: 20090324
  Transmission Date: 20091009
  Serious: Yes (Other)
  Sender: FDA-Public Use
  Company Number: 1000005568

PATIENT
  Age: 69 Year
  Sex: Female

DRUGS (1)
  1. ESCITALOPRAM [Suspect]
     Indication: DEPRESSION
     Dosage: 10 MG (10 MG, 1 IN 1 D), ORAL; 20 MG (20 MG, 1 IN 1 D), ORAL
     Route: 048
     Dates: start: 20081001

REACTIONS (7)
  - ANXIETY [None]
  - DEMENTIA [None]
  - DRUG INEFFECTIVE [None]
  - HALLUCINATION [None]
  - INCOHERENT [None]
  - SLEEP DISORDER [None]
  - WEIGHT DECREASED [None]
